FAERS Safety Report 16303906 (Version 2)
Quarter: 2019Q2

REPORT INFORMATION
  Report Type: Report from Study
  Country: DE (occurrence: DE)
  Receive Date: 20190513
  Receipt Date: 20190517
  Transmission Date: 20190711
  Serious: Yes (Hospitalization, Other)
  Sender: FDA-Public Use
  Company Number: DE-ROCHE-2310675

PATIENT
  Age: 36 Year
  Sex: Female

DRUGS (3)
  1. VITAMIN D3 [Concomitant]
     Active Substance: CHOLECALCIFEROL
     Route: 065
  2. OCREVUS [Suspect]
     Active Substance: OCRELIZUMAB
     Indication: RELAPSING-REMITTING MULTIPLE SCLEROSIS
     Route: 042
     Dates: start: 20180418, end: 20180418
  3. OCREVUS [Suspect]
     Active Substance: OCRELIZUMAB
     Route: 042
     Dates: start: 20180502

REACTIONS (4)
  - Infection susceptibility increased [Not Recovered/Not Resolved]
  - Pain [Unknown]
  - Endometrial cancer [Recovered/Resolved]
  - JC polyomavirus test positive [Unknown]

NARRATIVE: CASE EVENT DATE: 20180530
